FAERS Safety Report 7237494-2 (Version None)
Quarter: 2011Q1

REPORT INFORMATION
  Report Type: 
  Country: None (occurrence: None)
  Receive Date: 20110112
  Receipt Date: 20101221
  Transmission Date: 20110831
  Serious: Yes (Death, Life-Threatening, Hospitalization, Other)
  Sender: FDA-Public Use
  Company Number: FR-021340

PATIENT
  Age: 73 Year
  Sex: Male

DRUGS (3)
  1. PREDNISONE [Suspect]
     Indication: MULTIPLE MYELOMA
     Dosage: 135 MG (135 MG, 1 IN 1 D)
     Dates: start: 20091104
  2. THALIDOMIDE [Suspect]
     Indication: MULTIPLE MYELOMA
     Dosage: 200 MG (200 MG, 1 IN 1 D) ORAL
     Route: 048
     Dates: start: 20091104
  3. MELPHALAN (UNKNOWN) [Suspect]
     Indication: MULTIPLE MYELOMA
     Dosage: 4 MG (4 MG, 1 IN 1 D)
     Dates: start: 20101104

REACTIONS (14)
  - COMA [None]
  - NEUTROPENIA [None]
  - LUNG DISORDER [None]
  - THROMBOCYTOPENIA [None]
  - CONDITION AGGRAVATED [None]
  - HYPOXIA [None]
  - LUNG INFILTRATION [None]
  - PLASMACYTOSIS [None]
  - PNEUMOCYSTIS JIROVECI PNEUMONIA [None]
  - DYSPNOEA [None]
  - PLEURAL EFFUSION [None]
  - SPINAL COMPRESSION FRACTURE [None]
  - USE OF ACCESSORY RESPIRATORY MUSCLES [None]
  - HYPOCAPNIA [None]
